FAERS Safety Report 19711641 (Version 3)
Quarter: 2021Q3

REPORT INFORMATION
  Report Type: Spontaneous
  Country: CA (occurrence: CA)
  Receive Date: 20210816
  Receipt Date: 20210924
  Transmission Date: 20211014
  Serious: Yes (Other)
  Sender: FDA-Public Use
  Company Number: CA-AMERICAN REGENT INC-2021002148

PATIENT
  Age: 49 Year
  Sex: Female

DRUGS (1)
  1. VENOFER [Suspect]
     Active Substance: IRON SUCROSE
     Indication: VAGINAL HAEMORRHAGE
     Dosage: 100 MG/ VIAL (5 ML)
     Dates: start: 20210419, end: 20210419

REACTIONS (4)
  - Urticaria [Unknown]
  - Anxiety [Unknown]
  - Swelling [Unknown]
  - Product use in unapproved indication [Unknown]

NARRATIVE: CASE EVENT DATE: 20210419
